FAERS Safety Report 24263583 (Version 1)
Quarter: 2024Q3

REPORT INFORMATION
  Report Type: Report from Study
  Country: US (occurrence: US)
  Receive Date: 20240829
  Receipt Date: 20240829
  Transmission Date: 20241016
  Serious: Yes (Other)
  Sender: CSL BEHRING
  Company Number: US-BEH-2023162058

PATIENT
  Age: 61 Year
  Sex: Female

DRUGS (2)
  1. HIZENTRA [Suspect]
     Active Substance: HUMAN IMMUNOGLOBULIN G
     Indication: Primary immunodeficiency syndrome
     Dosage: 16 GRAM, QW
     Route: 058
     Dates: start: 20220128
  2. HIZENTRA [Suspect]
     Active Substance: HUMAN IMMUNOGLOBULIN G
     Dosage: 16 GRAM, QW
     Route: 065
     Dates: start: 202203

REACTIONS (8)
  - Mast cell activation syndrome [Unknown]
  - Histamine intolerance [Unknown]
  - COVID-19 [Unknown]
  - Sinus disorder [Unknown]
  - Pain [Recovering/Resolving]
  - Infusion site irritation [Unknown]
  - Weight decreased [Unknown]
  - Infusion site pain [Unknown]

NARRATIVE: CASE EVENT DATE: 20230501
